FAERS Safety Report 10094076 (Version 2)
Quarter: 2014Q2

REPORT INFORMATION
  Report Type: Spontaneous
  Country: US (occurrence: US)
  Receive Date: 20140422
  Receipt Date: 20140616
  Transmission Date: 20141212
  Serious: Yes (Other)
  Sender: FDA-Public Use
  Company Number: US-BIOGENIDEC-2014BI037278

PATIENT
  Age: 57 Year
  Sex: Female

DRUGS (1)
  1. AVONEX [Suspect]
     Indication: MULTIPLE SCLEROSIS
     Route: 030
     Dates: start: 19971217

REACTIONS (5)
  - Cardiac ablation [Unknown]
  - Emotional distress [Unknown]
  - Confusional state [Unknown]
  - Pain in extremity [Unknown]
  - Multiple sclerosis relapse [Unknown]
